FAERS Safety Report 16668989 (Version 2)
Quarter: 2019Q3

REPORT INFORMATION
  Report Type: Spontaneous
  Country: DE (occurrence: DE)
  Receive Date: 20190805
  Receipt Date: 20190826
  Transmission Date: 20191004
  Serious: Yes (Other)
  Sender: FDA-Public Use
  Company Number: DE-VERTEX PHARMACEUTICALS-2019-007159

PATIENT
  Age: 25 Year
  Sex: Male

DRUGS (14)
  1. VITAMIN A [RETINOL] [Concomitant]
     Active Substance: RETINOL
     Route: 048
  2. BECLOMETASONE;FORMOTEROL [Concomitant]
     Active Substance: BECLOMETHASONE\FORMOTEROL
  3. VITAMIN K [MENADIONE] [Concomitant]
     Active Substance: MENADIONE
     Route: 048
  4. CALCIUM [Concomitant]
     Active Substance: CALCIUM
     Route: 048
  5. NACL [Concomitant]
     Active Substance: SODIUM CHLORIDE
  6. SYMKEVI [Suspect]
     Active Substance: IVACAFTOR\TEZACAFTOR
     Indication: CYSTIC FIBROSIS
     Dosage: 100/150MG TABLETS IN MORNING
     Route: 048
     Dates: start: 20190611
  7. TIOTROPIUM BROMIDE [Concomitant]
     Active Substance: TIOTROPIUM BROMIDE
  8. UDC [Concomitant]
     Dosage: TWO TABLETS IN EVENING
     Route: 048
  9. VITAMIN D [COLECALCIFEROL] [Concomitant]
     Active Substance: CHOLECALCIFEROL
     Route: 048
  10. PULMOZYME [Concomitant]
     Active Substance: DORNASE ALFA
  11. PANKREATIN [Concomitant]
     Active Substance: PANCRELIPASE
     Route: 048
  12. PANTOPRAZOL [PANTOPRAZOLE] [Concomitant]
     Active Substance: PANTOPRAZOLE
     Route: 048
  13. VITAMIN E [Concomitant]
     Active Substance: .ALPHA.-TOCOPHEROL
     Route: 048
  14. KALYDECO [Suspect]
     Active Substance: IVACAFTOR
     Indication: CYSTIC FIBROSIS
     Dosage: 150MG TABLETS IN EVENING
     Route: 048
     Dates: start: 20190611

REACTIONS (3)
  - Blood bilirubin increased [Unknown]
  - Aspartate aminotransferase increased [Recovered/Resolved]
  - Alanine aminotransferase increased [Recovered/Resolved]

NARRATIVE: CASE EVENT DATE: 201906
